FAERS Safety Report 20699134 (Version 2)
Quarter: 2022Q2

REPORT INFORMATION
  Report Type: Spontaneous
  Country: US (occurrence: None)
  Receive Date: 20220412
  Receipt Date: 20220601
  Transmission Date: 20220720
  Serious: Yes (Death)
  Sender: FDA-Public Use
  Company Number: US-ROCHE-3068059

PATIENT
  Age: 49 Year
  Sex: Male

DRUGS (1)
  1. ZELBORAF [Suspect]
     Active Substance: VEMURAFENIB
     Indication: Ductal adenocarcinoma of pancreas
     Route: 048
     Dates: start: 202202

REACTIONS (2)
  - Pancreatic carcinoma metastatic [Fatal]
  - Off label use [Unknown]

NARRATIVE: CASE EVENT DATE: 20220315
